FAERS Safety Report 5919994-8 (Version None)
Quarter: 2008Q4

REPORT INFORMATION
  Report Type: 
  Country: None (occurrence: None)
  Receive Date: 20081014
  Receipt Date: 20081002
  Transmission Date: 20090506
  Serious: Yes (Hospitalization)
  Sender: FDA-Public Use
  Company Number: 237027J08USA

PATIENT
  Age: 41 Year
  Sex: Female
  Weight: 67 kg

DRUGS (6)
  1. REBIF [Suspect]
     Indication: MULTIPLE SCLEROSIS
     Dosage: 44 MCG, 3 IN 1 WEEKS, SUBCUTANEOUS
     Route: 058
     Dates: start: 20070928, end: 20080101
  2. REBIF [Suspect]
     Indication: MULTIPLE SCLEROSIS
     Dosage: 44 MCG, 3 IN 1 WEEKS, SUBCUTANEOUS
     Route: 058
     Dates: start: 20080101
  3. ADVAIR (SERETIDE) [Concomitant]
  4. COMBIVENT [Concomitant]
  5. DURAGESIC PATCH (FENTANYL /00174601/) [Concomitant]
  6. OXYCONTIN [Concomitant]

REACTIONS (4)
  - NEPHROLITHIASIS [None]
  - PAIN [None]
  - RENAL FAILURE [None]
  - VOMITING [None]
